FAERS Safety Report 11994092 (Version 1)
Quarter: 2016Q1

REPORT INFORMATION
  Report Type: Spontaneous
  Country: DE (occurrence: DE)
  Receive Date: 20160203
  Receipt Date: 20160203
  Transmission Date: 20160526
  Serious: Yes (Other)
  Sender: FDA-Public Use
  Company Number: DE-PFIZER INC-2016003926

PATIENT
  Age: 60 Year
  Sex: Male

DRUGS (6)
  1. ASPIRIN. [Suspect]
     Active Substance: ASPIRIN
     Dosage: UNK
     Dates: start: 20150415, end: 20151026
  2. CORDAREX [Suspect]
     Active Substance: AMIODARONE
     Indication: ATRIAL FIBRILLATION
     Dosage: 200 MG, 3X/DAY
     Route: 048
     Dates: start: 20150415, end: 20150509
  3. CORDAREX [Suspect]
     Active Substance: AMIODARONE
     Dosage: 200 MG, DAILY
     Route: 048
     Dates: start: 20150510, end: 20150826
  4. MARCUMAR [Suspect]
     Active Substance: PHENPROCOUMON
     Dosage: UNK
     Dates: start: 20150504
  5. CLOPIDOGREL [Suspect]
     Active Substance: CLOPIDOGREL BISULFATE
     Indication: MYOCARDIAL INFARCTION
     Dosage: UNK
     Dates: start: 20150415, end: 20151026
  6. BISOPROLOL [Concomitant]
     Active Substance: BISOPROLOL
     Indication: TACHYCARDIA
     Dosage: UNK
     Dates: start: 201406

REACTIONS (3)
  - Optic neuritis [Not Recovered/Not Resolved]
  - Arthritis [Recovered/Resolved]
  - Arthralgia [Unknown]

NARRATIVE: CASE EVENT DATE: 201508
